FAERS Safety Report 15766721 (Version 1)
Quarter: 2018Q4

REPORT INFORMATION
  Report Type: Spontaneous
  Country: US (occurrence: US)
  Receive Date: 20181227
  Receipt Date: 20181227
  Transmission Date: 20190205
  Serious: Yes (Hospitalization)
  Sender: FDA-Public Use
  Company Number: US-SAKK-2018SA343327AA

PATIENT
  Age: 62 Year
  Sex: Female

DRUGS (1)
  1. LANTUS [Suspect]
     Active Substance: INSULIN GLARGINE
     Indication: TYPE 1 DIABETES MELLITUS
     Dosage: 16 UNITS, 17 UNITS BID

REACTIONS (5)
  - Off label use [Unknown]
  - Blood ketone body [Unknown]
  - Blood glucose increased [Unknown]
  - Drug effect decreased [Unknown]
  - Product use issue [Unknown]
